FAERS Safety Report 20139875 (Version 2)
Quarter: 2022Q1

REPORT INFORMATION
  Report Type: Spontaneous
  Country: US (occurrence: US)
  Receive Date: 20211202
  Receipt Date: 20220106
  Transmission Date: 20220423
  Serious: Yes (Death)
  Sender: FDA-Public Use
  Company Number: US-BEH-2021138650

PATIENT
  Age: 61 Year
  Sex: Female

DRUGS (2)
  1. ZEMAIRA [Suspect]
     Active Substance: .ALPHA.1-PROTEINASE INHIBITOR HUMAN
     Indication: Emphysema
     Dosage: 3756 MILLIGRAM, QW
     Route: 042
     Dates: start: 202009
  2. ZEMAIRA [Suspect]
     Active Substance: .ALPHA.1-PROTEINASE INHIBITOR HUMAN
     Dosage: 3756 MILLIGRAM, QW
     Route: 042
     Dates: start: 20180222, end: 20211213

REACTIONS (2)
  - Death [Fatal]
  - Weight fluctuation [Unknown]

NARRATIVE: CASE EVENT DATE: 20211213
